FAERS Safety Report 8129384-8 (Version None)
Quarter: 2012Q1

REPORT INFORMATION
  Report Type: 
  Country: None (occurrence: None)
  Receive Date: 20120210
  Receipt Date: 20120131
  Transmission Date: 20120608
  Serious: Yes (Other)
  Sender: FDA-Public Use
  Company Number: FR-JNJFOC-20110310797

PATIENT
  Age: 19 Year
  Sex: Female
  Weight: 60 kg

DRUGS (6)
  1. INFLIXIMAB, RECOMBINANT [Suspect]
     Indication: CROHN'S DISEASE
     Route: 042
     Dates: end: 20100701
  2. INFLIXIMAB, RECOMBINANT [Suspect]
     Route: 042
     Dates: start: 20110314
  3. INFLIXIMAB, RECOMBINANT [Suspect]
     Route: 042
     Dates: start: 20110323
  4. HUMIRA [Concomitant]
  5. HYDROCORTISONE [Concomitant]
     Indication: PREMEDICATION
  6. INFLIXIMAB, RECOMBINANT [Suspect]
     Route: 042
     Dates: start: 20110125

REACTIONS (4)
  - DIZZINESS [None]
  - INFUSION RELATED REACTION [None]
  - HYPOTENSION [None]
  - MATERNAL EXPOSURE DURING PREGNANCY [None]
